FAERS Safety Report 23933685 (Version 3)
Quarter: 2025Q4

REPORT INFORMATION
  Report Type: Report from Study
  Country: EU (occurrence: EU)
  Receive Date: 20240603
  Receipt Date: 20251016
  Transmission Date: 20260117
  Serious: Yes (Hospitalization)
  Sender: ABBVIE
  Company Number: EU-ABBVIE-5783670

PATIENT
  Age: 62 Year
  Sex: Male
  Weight: 97 kg

DRUGS (8)
  1. SKYRIZI [Suspect]
     Active Substance: RISANKIZUMAB-RZAA
     Indication: Psoriasis
     Dosage: 150MG/12 WKS. ON 1 D/WK.
     Route: 058
     Dates: start: 20230531
  2. CANDESARTAN [Concomitant]
     Active Substance: CANDESARTAN
     Indication: Hypertension
     Dosage: ROA - PER ORAL
     Dates: start: 2015
  3. PROMETHAZINE [Concomitant]
     Active Substance: PROMETHAZINE HYDROCHLORIDE
     Indication: Depression
     Dosage: TIME INTERVAL: AS NECESSARY: DOSAGE: 20 MG/ML ROA - PER ORAL
     Dates: start: 2017
  4. BECLOMETHASONE DIPROPIONATE\FORMOTEROL FUMARATE\GLYCOPYRROLATE [Concomitant]
     Active Substance: BECLOMETHASONE DIPROPIONATE\FORMOTEROL FUMARATE\GLYCOPYRROLATE
     Indication: Chronic obstructive pulmonary disease
     Dosage: 87 MICROGRAMS/5 MICROGRAMS/9 MICROGRAMS? FREQUENCY : 2-0-0. ROA - INHALED
     Dates: start: 20230823
  5. HYDROCHLOROTHIAZIDE [Concomitant]
     Active Substance: HYDROCHLOROTHIAZIDE
     Indication: Hypertension
     Dosage: ROUTE - PER ORAL
     Dates: start: 20221215, end: 20240520
  6. VITAMIN D [Concomitant]
     Active Substance: VITAMIN D NOS
     Indication: Reactive gastropathy
     Dosage: ROA - PER ORAL
     Dates: start: 20240430
  7. FOLIC ACID [Concomitant]
     Active Substance: FOLIC ACID
     Indication: Reactive gastropathy
     Dosage: ROA - PER ORAL
     Dates: start: 20240430
  8. FARXIGA [Concomitant]
     Active Substance: DAPAGLIFLOZIN PROPANEDIOL
     Indication: Renal failure
     Dosage: ROA - PER ORAL
     Dates: start: 20240520

REACTIONS (3)
  - Upper gastrointestinal haemorrhage [Recovered/Resolved]
  - Abdominal pain upper [Not Recovered/Not Resolved]
  - Nasopharyngitis [Recovered/Resolved]

NARRATIVE: CASE EVENT DATE: 20230911
